FAERS Safety Report 23356478 (Version 1)
Quarter: 2024Q1

REPORT INFORMATION
  Report Type: Spontaneous
  Country: US (occurrence: US)
  Receive Date: 20240102
  Receipt Date: 20240102
  Transmission Date: 20240409
  Serious: No
  Sender: FDA-Public Use
  Company Number: US-TOLMAR, INC.-23US045358

PATIENT
  Sex: Male

DRUGS (3)
  1. JATENZO [Suspect]
     Active Substance: TESTOSTERONE UNDECANOATE
     Indication: Product used for unknown indication
     Dosage: UNK, BID
  2. JATENZO [Suspect]
     Active Substance: TESTOSTERONE UNDECANOATE
     Dosage: UNK
  3. JATENZO [Suspect]
     Active Substance: TESTOSTERONE UNDECANOATE
     Dosage: UNK

REACTIONS (1)
  - Blood testosterone increased [Unknown]
